FAERS Safety Report 6793502-4 (Version None)
Quarter: 2010Q2

REPORT INFORMATION
  Report Type: 
  Country: None (occurrence: None)
  Receive Date: 20100624
  Receipt Date: 20100428
  Transmission Date: 20101027
  Serious: Yes (Death)
  Sender: FDA-Public Use
  Company Number: US-MYLANLABS-2010S1006566

PATIENT
  Age: 59 Year
  Sex: Male

DRUGS (6)
  1. CLOZAPINE [Suspect]
     Route: 048
  2. WELLBUTRIN SR [Concomitant]
  3. DUONEB [Concomitant]
     Route: 055
  4. PROAIR HFA [Concomitant]
     Indication: COUGH
     Dosage: AND PRN
     Route: 055
  5. SPIRIVA [Concomitant]
     Route: 055
  6. VITAMINS [Concomitant]

REACTIONS (1)
  - HYPOXIA [None]
